FAERS Safety Report 15784015 (Version 2)
Quarter: 2019Q2

REPORT INFORMATION
  Report Type: Report from Study
  Country: None (occurrence: US)
  Receive Date: 20190103
  Receipt Date: 20190523
  Transmission Date: 20190711
  Serious: Yes (Hospitalization, Other)
  Sender: FDA-Public Use
  Company Number: US-ABBVIE-18S-163-2606101-00

PATIENT
  Age: 71 Year
  Sex: Female
  Weight: 49.03 kg

DRUGS (12)
  1. PREMARIN [Concomitant]
     Active Substance: ESTROGENS, CONJUGATED
     Indication: MENOPAUSAL SYMPTOMS
  2. URSODIOL. [Concomitant]
     Active Substance: URSODIOL
     Indication: DYSPEPSIA
  3. DILANTIN [Concomitant]
     Active Substance: PHENYTOIN
     Indication: SEIZURE
  4. OMEPRAZOLE. [Concomitant]
     Active Substance: OMEPRAZOLE
     Indication: DYSPEPSIA
  5. CREON [Suspect]
     Active Substance: PANCRELIPASE AMYLASE\PANCRELIPASE LIPASE\PANCRELIPASE PROTEASE
     Indication: PRODUCT USED FOR UNKNOWN INDICATION
     Dosage: 12- 14 CAPSULES PER DAY
     Route: 048
     Dates: start: 20041109
  6. CENTRUM SILVER [Concomitant]
     Active Substance: MINERALS\VITAMINS
     Indication: SUPPLEMENTATION THERAPY
  7. VITAMIN D3 [Concomitant]
     Active Substance: CHOLECALCIFEROL
     Indication: VITAMIN SUPPLEMENTATION
  8. CITRACAL [Concomitant]
     Active Substance: CALCIUM CITRATE
     Indication: SUPPLEMENTATION THERAPY
  9. BIOTIN [Concomitant]
     Active Substance: BIOTIN
     Indication: SUPPLEMENTATION THERAPY
  10. CARAFATE [Concomitant]
     Active Substance: SUCRALFATE
     Indication: DYSPEPSIA
  11. NOVOLOG [Concomitant]
     Active Substance: INSULIN ASPART
     Indication: PANCREATECTOMY
  12. PROLIA [Concomitant]
     Active Substance: DENOSUMAB
     Indication: OSTEOPENIA

REACTIONS (19)
  - Precancerous skin lesion [Recovered/Resolved]
  - Osteoarthritis [Recovered/Resolved]
  - Precancerous skin lesion [Recovered/Resolved]
  - Haemorrhoids [Unknown]
  - Cataract [Recovered/Resolved]
  - Fall [Recovered/Resolved]
  - Klebsiella infection [Recovered/Resolved]
  - Cyst [Unknown]
  - Haemorrhoids [Recovered/Resolved]
  - Gastrointestinal stromal tumour [Recovered/Resolved]
  - Arthrofibrosis [Recovered/Resolved]
  - Parathyroidectomy [Unknown]
  - Liver abscess [Recovered/Resolved]
  - Escherichia infection [Recovered/Resolved]
  - Ligament operation [Recovered/Resolved]
  - Meniscus operation [Recovered/Resolved]
  - Parathyroid tumour benign [Recovered/Resolved]
  - Bezoar [Recovered/Resolved]
  - Osteoarthritis [Recovered/Resolved]

NARRATIVE: CASE EVENT DATE: 2005
